FAERS Safety Report 6604688-6 (Version None)
Quarter: 2010Q1

REPORT INFORMATION
  Report Type: 
  Country: None (occurrence: None)
  Receive Date: 20100226
  Receipt Date: 20100210
  Transmission Date: 20100710
  Serious: Yes (Other)
  Sender: FDA-Public Use
  Company Number: JP-ROCHE-686040

PATIENT
  Age: 55 Year
  Sex: Male

DRUGS (4)
  1. CELLCEPT [Suspect]
     Route: 048
  2. TACROLIMUS HYDRATE [Concomitant]
     Route: 065
  3. METILPREDNISOLONE [Concomitant]
     Route: 065
  4. RITUXIMAB [Concomitant]

REACTIONS (2)
  - CEREBRAL INFARCTION [None]
  - DEEP VEIN THROMBOSIS [None]
